FAERS Safety Report 15308302 (Version 1)
Quarter: 2018Q3

REPORT INFORMATION
  Report Type: Spontaneous
  Country: US (occurrence: US)
  Receive Date: 20180822
  Receipt Date: 20180822
  Transmission Date: 20181010
  Serious: No
  Sender: FDA-Public Use
  Company Number: US-BAUSCH-BL-2018-022728

PATIENT
  Age: 65 Year
  Sex: Female
  Weight: 63.56 kg

DRUGS (1)
  1. LUMIFY [Suspect]
     Active Substance: BRIMONIDINE TARTRATE
     Indication: OCULAR HYPERAEMIA
     Dosage: 1 DROP IN EACH EYE ONE TIME
     Route: 047
     Dates: start: 20180802, end: 20180803

REACTIONS (6)
  - Eye swelling [Recovered/Resolved]
  - Cough [Recovered/Resolved]
  - Ear discomfort [Recovered/Resolved]
  - Eye pain [Recovered/Resolved]
  - Sensation of foreign body [Recovered/Resolved]
  - Nasal discomfort [Recovered/Resolved]

NARRATIVE: CASE EVENT DATE: 20180802
